FAERS Safety Report 4582143-5 (Version None)
Quarter: 2005Q1

REPORT INFORMATION
  Report Type: 
  Country: None (occurrence: None)
  Receive Date: 20050119
  Receipt Date: 20040203
  Transmission Date: 20050727
  Serious: Yes (Hospitalization)
  Sender: FDA-Public Use
  Company Number: A03200400337

PATIENT
  Age: 82 Year
  Sex: Male
  Weight: 77.1115 kg

DRUGS (3)
  1. PLAVIX [Suspect]
     Indication: PERIPHERAL VASCULAR DISORDER
     Dosage: 75 MG QD - ORAL
     Route: 048
     Dates: start: 20010101, end: 20020101
  2. GLIMEPIRIDE [Concomitant]
  3. METOPROLOL [Concomitant]

REACTIONS (1)
  - HAEMATEMESIS [None]
